FAERS Safety Report 25612938 (Version 1)
Quarter: 2025Q3

REPORT INFORMATION
  Report Type: Spontaneous
  Country: US (occurrence: US)
  Receive Date: 20250728
  Receipt Date: 20250728
  Transmission Date: 20251021
  Serious: Yes (Other)
  Sender: DR REDDYS
  Company Number: None

PATIENT
  Age: 67 Year
  Sex: Male

DRUGS (2)
  1. HEPARIN [Suspect]
     Active Substance: HEPARIN SODIUM
     Indication: Anticoagulant therapy
  2. MILRINONE [Concomitant]
     Active Substance: MILRINONE
     Indication: Product used for unknown indication

REACTIONS (2)
  - Intra-abdominal haematoma [Recovering/Resolving]
  - Pulmonary alveolar haemorrhage [Recovering/Resolving]
